FAERS Safety Report 22264677 (Version 1)
Quarter: 2023Q2

REPORT INFORMATION
  Report Type: Spontaneous
  Country: US (occurrence: US)
  Receive Date: 20230428
  Receipt Date: 20230428
  Transmission Date: 20230722
  Serious: Yes (Other)
  Sender: FDA-Public Use
  Company Number: US-ABBVIE-4741184

PATIENT
  Age: 21 Year
  Sex: Female

DRUGS (3)
  1. VENETOCLAX [Suspect]
     Active Substance: VENETOCLAX
     Indication: Acute myeloid leukaemia
     Dosage: 1 CYCLE
     Route: 048
  2. AZACITIDINE [Concomitant]
     Active Substance: AZACITIDINE
     Indication: Acute myeloid leukaemia
  3. GILTERITINIB [Concomitant]
     Active Substance: GILTERITINIB
     Indication: Acute myeloid leukaemia

REACTIONS (3)
  - Febrile neutropenia [Unknown]
  - Off label use [Unknown]
  - Drug ineffective [Unknown]
